FAERS Safety Report 14189203 (Version 4)
Quarter: 2018Q2

REPORT INFORMATION
  Report Type: Other
  Country: IT (occurrence: IT)
  Receive Date: 20171115
  Receipt Date: 20180502
  Transmission Date: 20180711
  Serious: Yes (Death, Other)
  Sender: FDA-Public Use
  Company Number: IT-ALEXION PHARMACEUTICALS INC.-A201712579

PATIENT
  Age: 8 Year
  Sex: Male
  Weight: 36 kg

DRUGS (9)
  1. SOLIRIS [Suspect]
     Active Substance: ECULIZUMAB
     Indication: ATYPICAL HAEMOLYTIC URAEMIC SYNDROME
     Dosage: 900 MG, UNK
     Route: 042
     Dates: start: 20130330
  2. ALLOPURINOL. [Concomitant]
     Active Substance: ALLOPURINOL
     Indication: HYPERURICAEMIA
     Dosage: 100 MG, UNK
     Route: 065
  3. FUROSEMIDE. [Concomitant]
     Active Substance: FUROSEMIDE
     Indication: HYPERTENSION
     Dosage: 25 MG, UNK
     Route: 065
  4. ROCALTROL [Concomitant]
     Active Substance: CALCITRIOL
     Indication: HYPERPARATHYROIDISM SECONDARY
     Dosage: 25 ?G, UNK
     Route: 065
  5. ATENOLOL. [Concomitant]
     Active Substance: ATENOLOL
     Indication: HYPERTENSION
     Dosage: 25 MG, UNK
     Route: 065
  6. RAMIPRIL. [Concomitant]
     Active Substance: RAMIPRIL
     Indication: HYPERTENSION
     Dosage: 5 MG, UNK
     Route: 065
  7. LEVOTHYROXINE. [Concomitant]
     Active Substance: LEVOTHYROXINE
     Indication: HYPOTHYROIDISM
     Dosage: 75 ?G, UNK
     Route: 065
  8. SODIUM BICARBONATE. [Concomitant]
     Active Substance: SODIUM BICARBONATE
     Indication: METABOLIC ACIDOSIS
     Dosage: 1000 MG, UNK
     Route: 065
  9. ESKIM [Concomitant]
     Active Substance: OMEGA-3 FATTY ACIDS
     Indication: HYPERLIPIDAEMIA
     Dosage: 1000 MG, UNK
     Route: 065

REACTIONS (18)
  - Cerebral haemorrhage [Fatal]
  - Clubbing [Fatal]
  - Pulmonary hypertension [Fatal]
  - Echocardiogram abnormal [Unknown]
  - Brain oedema [Fatal]
  - Glomerulosclerosis [Fatal]
  - Cardio-respiratory arrest [Fatal]
  - Syncope [Fatal]
  - Autoimmune thyroiditis [Unknown]
  - Dyspnoea exertional [Unknown]
  - Cardiac failure [Fatal]
  - Dyspnoea at rest [Fatal]
  - Hypoxic-ischaemic encephalopathy [Fatal]
  - Dependence on oxygen therapy [Unknown]
  - Acute myocardial infarction [Fatal]
  - Dyspnoea [Fatal]
  - Pulmonary fibrosis [Unknown]
  - Incorrect dose administered [Unknown]

NARRATIVE: CASE EVENT DATE: 20130330
